FAERS Safety Report 4314704-2 (Version None)
Quarter: 2004Q1

REPORT INFORMATION
  Report Type: 
  Country: None (occurrence: None)
  Receive Date: 20040309
  Receipt Date: 20040309
  Transmission Date: 20041129
  Serious: Yes (Death)
  Sender: FDA-Public Use
  Company Number: None

PATIENT

DRUGS (4)
  1. IRESSA [Suspect]
     Indication: OESOPHAGEAL CARCINOMA
     Dosage: 250 MG QD PO
     Route: 048
     Dates: start: 20030915, end: 20031217
  2. XANAX [Suspect]
     Indication: ANXIETY
     Dosage: 0.5MG Q6H PO
     Route: 048
  3. PAXIL [Suspect]
     Indication: DEPRESSION
     Dosage: 20 MG QAM PO
     Route: 048
  4. NEXIUM [Suspect]
     Indication: GASTROOESOPHAGEAL REFLUX DISEASE
     Dosage: 40 MG QD PO
     Route: 048

REACTIONS (6)
  - ACUTE RESPIRATORY DISTRESS SYNDROME [None]
  - DYSPHAGIA [None]
  - PNEUMONIA ASPIRATION [None]
  - RESPIRATORY FAILURE [None]
  - RETCHING [None]
  - WEIGHT DECREASED [None]
